FAERS Safety Report 14175486 (Version 1)
Quarter: 2017Q4

REPORT INFORMATION
  Report Type: Spontaneous
  Country: US (occurrence: US)
  Receive Date: 20171109
  Receipt Date: 20171109
  Transmission Date: 20180321
  Serious: No
  Sender: FDA-Public Use
  Company Number: US-ALLERGAN-1676491US

PATIENT
  Age: 70 Year
  Sex: Female

DRUGS (2)
  1. COMBIGAN [Suspect]
     Active Substance: BRIMONIDINE TARTRATE\TIMOLOL MALEATE
     Indication: INTRAOCULAR PRESSURE INCREASED
     Dosage: 2 GTT, BID
     Route: 047
     Dates: start: 20160311, end: 20161111
  2. GENERIC LIPITOR [Concomitant]
     Active Substance: ATORVASTATIN CALCIUM
     Indication: BLOOD CHOLESTEROL INCREASED
     Dosage: UNK, QOD

REACTIONS (2)
  - Skin exfoliation [Recovered/Resolved]
  - Pain [Recovered/Resolved]

NARRATIVE: CASE EVENT DATE: 201611
